FAERS Safety Report 17555376 (Version 4)
Quarter: 2020Q4

REPORT INFORMATION
  Report Type: Spontaneous
  Country: US (occurrence: US)
  Receive Date: 20200318
  Receipt Date: 20201006
  Transmission Date: 20210113
  Serious: Yes (Hospitalization)
  Sender: FDA-Public Use
  Company Number: US-VERTEX PHARMACEUTICALS-2020-005651

PATIENT
  Age: 9 Year
  Sex: Female

DRUGS (11)
  1. FLOVENT [Concomitant]
     Active Substance: FLUTICASONE PROPIONATE
  2. PREVACID [Concomitant]
     Active Substance: LANSOPRAZOLE
  3. CEFDINIR. [Concomitant]
     Active Substance: CEFDINIR
  4. ORKAMBI [Suspect]
     Active Substance: IVACAFTOR\LUMACAFTOR
     Indication: CYSTIC FIBROSIS
     Dosage: 2 TABLETS(LUMACAFTOR/IVACAFTOR), BID
     Route: 048
     Dates: start: 20171116, end: 20200707
  5. SULFAMETHOXAZOLE;TRIMETHOPRIM [Concomitant]
     Active Substance: SULFAMETHOXAZOLE\TRIMETHOPRIM
  6. PULMOZYME [Concomitant]
     Active Substance: DORNASE ALFA
  7. ALBUTEROL [SALBUTAMOL] [Concomitant]
     Active Substance: ALBUTEROL
  8. TOBRAMYCIN. [Concomitant]
     Active Substance: TOBRAMYCIN
  9. CREON [Concomitant]
     Active Substance: PANCRELIPASE AMYLASE\PANCRELIPASE LIPASE\PANCRELIPASE PROTEASE
  10. LANTUS [Concomitant]
     Active Substance: INSULIN GLARGINE
  11. INSULIN [Concomitant]
     Active Substance: INSULIN NOS

REACTIONS (5)
  - Illness [Unknown]
  - Decreased appetite [Unknown]
  - Pulmonary function test decreased [Unknown]
  - Cough [Unknown]
  - Weight decreased [Unknown]

NARRATIVE: CASE EVENT DATE: 201912
